FAERS Safety Report 21699320 (Version 2)
Quarter: 2023Q1

REPORT INFORMATION
  Report Type: Report from Study
  Country: US (occurrence: US)
  Receive Date: 20221208
  Receipt Date: 20230130
  Transmission Date: 20230417
  Serious: Yes (Other)
  Sender: FDA-Public Use
  Company Number: US-ABBVIE-4183558

PATIENT
  Sex: Female

DRUGS (2)
  1. HUMIRA [Suspect]
     Active Substance: ADALIMUMAB
     Indication: Crohn^s disease
     Dosage: STRENGTH40 MG
     Route: 058
     Dates: start: 20120101
  2. JANSSEN COVID-19 VACCINE [Concomitant]
     Active Substance: AD26.COV2.S
     Indication: COVID-19 immunisation
     Dosage: 1 IN 1 ONCE, FIRST DOSE
     Route: 030
     Dates: start: 20210409, end: 20210409

REACTIONS (3)
  - Colectomy [Unknown]
  - Diarrhoea [Recovering/Resolving]
  - COVID-19 [Recovering/Resolving]
